FAERS Safety Report 10142698 (Version 1)
Quarter: 2014Q2

REPORT INFORMATION
  Report Type: Spontaneous
  Country: US (occurrence: None)
  Receive Date: 20140429
  Receipt Date: 20140429
  Transmission Date: 20141212
  Serious: Yes (Hospitalization)
  Sender: FDA-Public Use
  Company Number: None

PATIENT
  Age: 70 Year
  Sex: Female
  Weight: 56.25 kg

DRUGS (1)
  1. NEXAVAR [Suspect]
     Indication: THYROID CANCER
     Dosage: 200MG?1 QAM AND QHS ?PO
     Route: 048
     Dates: start: 201306, end: 20140428

REACTIONS (3)
  - Mental status changes [None]
  - Posterior reversible encephalopathy syndrome [None]
  - Nuclear magnetic resonance imaging brain abnormal [None]
